FAERS Safety Report 15811176 (Version 4)
Quarter: 2022Q1

REPORT INFORMATION
  Report Type: Spontaneous
  Country: GB (occurrence: GB)
  Receive Date: 20190111
  Receipt Date: 20220219
  Transmission Date: 20220423
  Serious: Yes (Hospitalization, Other)
  Sender: FDA-Public Use
  Company Number: GB-MHRA-EYC 00170646

PATIENT
  Age: 11 Year
  Sex: Male
  Weight: 48 kg

DRUGS (5)
  1. ZOLEDRONIC ACID [Suspect]
     Active Substance: ZOLEDRONIC ACID
     Indication: Spinal fracture
     Dosage: 1.22 MILLIGRAM, TOTAL, RECEIVED A HALF DOSE OF ZOLEDRONATE (0.025 MG/KG)
     Route: 042
     Dates: start: 20171201
  2. ZOLEDRONIC ACID [Suspect]
     Active Substance: ZOLEDRONIC ACID
     Indication: Spinal compression fracture
  3. CHOLECALCIFEROL [Concomitant]
     Active Substance: CHOLECALCIFEROL
     Indication: Prophylaxis
     Dosage: UNK,VITAMIN D SUPPLEMENTATION
     Route: 065
  4. DEFLAZACORT [Concomitant]
     Active Substance: DEFLAZACORT
     Indication: Duchenne muscular dystrophy
     Dosage: 18 MILLIGRAM, ONCE A DAY
     Route: 065
  5. CALCIUM [Concomitant]
     Active Substance: CALCIUM
     Indication: Prophylaxis
     Dosage: CALCIUM SUPPLEMENTATION AS PER HOSPITAL PROTOCOL
     Route: 065

REACTIONS (13)
  - Rhabdomyolysis [Recovered/Resolved]
  - Systemic inflammatory response syndrome [Recovered/Resolved]
  - Hypophosphataemia [Recovered/Resolved]
  - Hypocalcaemia [Recovered/Resolved]
  - Myoglobinuria [Recovered/Resolved]
  - Inflammation [Recovered/Resolved]
  - Tachypnoea [Unknown]
  - Malaise [Unknown]
  - Chromaturia [Unknown]
  - Muscle spasms [Unknown]
  - Blood urine present [Unknown]
  - Tachycardia [Unknown]
  - Pyrexia [Unknown]

NARRATIVE: CASE EVENT DATE: 20171202
